FAERS Safety Report 19788379 (Version 2)
Quarter: 2021Q3

REPORT INFORMATION
  Report Type: Spontaneous
  Country: GB (occurrence: GB)
  Receive Date: 20210903
  Receipt Date: 20210927
  Transmission Date: 20211014
  Serious: Yes (Other)
  Sender: FDA-Public Use
  Company Number: GB-PFIZER INC-2021751703

PATIENT
  Age: 21 Year
  Sex: Female
  Weight: 80 kg

DRUGS (1)
  1. GENOTROPIN [Suspect]
     Active Substance: SOMATROPIN
     Dosage: 0.8 MG, 1X/DAY
     Dates: start: 200012

REACTIONS (3)
  - Product dose omission issue [Unknown]
  - Coma [Unknown]
  - Device information output issue [Unknown]
